FAERS Safety Report 4951739-0 (Version None)
Quarter: 2006Q1

REPORT INFORMATION
  Report Type: 
  Country: None (occurrence: None)
  Receive Date: 20060323
  Receipt Date: 20060215
  Transmission Date: 20060701
  Serious: Yes (Life-Threatening, Hospitalization, Disabling)
  Sender: FDA-Public Use
  Company Number: JP-JPN-A200600640

PATIENT
  Age: 23 Year
  Sex: Female
  Weight: 50 kg

DRUGS (3)
  1. ZOVIRAX [Suspect]
     Indication: ENCEPHALITIS HERPES
     Dosage: 250MG THREE TIMES PER DAY
     Route: 042
     Dates: start: 20060207, end: 20060209
  2. GLYCEOL [Suspect]
     Route: 042
  3. PENTCILLIN [Suspect]
     Route: 042

REACTIONS (5)
  - ALANINE AMINOTRANSFERASE INCREASED [None]
  - ASPARTATE AMINOTRANSFERASE INCREASED [None]
  - COMA HEPATIC [None]
  - HEPATITIS FULMINANT [None]
  - PROTHROMBIN LEVEL DECREASED [None]
